FAERS Safety Report 4678478-8 (Version None)
Quarter: 2005Q2

REPORT INFORMATION
  Report Type: 
  Country: None (occurrence: None)
  Receive Date: 20050531
  Receipt Date: 20050531
  Transmission Date: 20051028
  Serious: Yes (Life-Threatening, Hospitalization, Disabling)
  Sender: FDA-Public Use
  Company Number: None

PATIENT
  Age: 51 Year
  Sex: Male
  Weight: 90.7194 kg

DRUGS (2)
  1. LEVAQUIN [Suspect]
     Indication: CHOLELITHIASIS
     Dosage: 500 MG - 1 TABLET DAILY
  2. LEVAQUIN [Suspect]
     Indication: PANCREATITIS
     Dosage: 500 MG - 1 TABLET DAILY

REACTIONS (10)
  - ACTIVITIES OF DAILY LIVING IMPAIRED [None]
  - BLISTER [None]
  - DISABILITY [None]
  - DRUG HYPERSENSITIVITY [None]
  - GRIP STRENGTH DECREASED [None]
  - IMMUNE SYSTEM DISORDER [None]
  - NERVOUS SYSTEM DISORDER [None]
  - OEDEMA PERIPHERAL [None]
  - RENAL FAILURE [None]
  - SKIN BURNING SENSATION [None]
